FAERS Safety Report 8325396-X (Version None)
Quarter: 2012Q2

REPORT INFORMATION
  Report Type: 
  Country: None (occurrence: None)
  Receive Date: 20120501
  Receipt Date: 20120419
  Transmission Date: 20120825
  Serious: Yes (Other)
  Sender: FDA-Public Use
  Company Number: US-JNJFOC-20120410248

PATIENT
  Age: 75 Year
  Sex: Female
  Weight: 68.04 kg

DRUGS (8)
  1. RAMIPRIL [Concomitant]
     Route: 065
  2. SIMVASTATIN [Concomitant]
     Indication: SLEEP DISORDER
     Route: 065
  3. CELEBREX [Concomitant]
     Route: 065
  4. LOVASTATIN [Concomitant]
     Route: 065
  5. NEOSPORIN [Suspect]
     Indication: SURGERY
     Dosage: LESS THAN A PEA SIZED AMOUNT
     Route: 061
     Dates: start: 20120413, end: 20120416
  6. PLAVIX [Concomitant]
     Indication: CARDIAC DISORDER
     Route: 065
  7. TEMAZEPAM [Concomitant]
     Indication: SLEEP DISORDER
     Route: 065
  8. GABAPENTIN [Concomitant]
     Indication: NEUROPATHY PERIPHERAL
     Route: 065

REACTIONS (6)
  - PURULENCE [None]
  - APPLICATION SITE SWELLING [None]
  - INCISION SITE INFECTION [None]
  - APPLICATION SITE ERYTHEMA [None]
  - OFF LABEL USE [None]
  - EXPIRED DRUG ADMINISTERED [None]
